FAERS Safety Report 16325126 (Version 1)
Quarter: 2019Q2

REPORT INFORMATION
  Report Type: Spontaneous
  Country: FI (occurrence: FI)
  Receive Date: 20190517
  Receipt Date: 20190517
  Transmission Date: 20190711
  Serious: Yes (Disabling)
  Sender: FDA-Public Use
  Company Number: FI-BAUSCH-BL-2019-014184

PATIENT
  Sex: Female

DRUGS (15)
  1. ORLOC [Concomitant]
     Active Substance: BISOPROLOL FUMARATE
     Indication: MIGRAINE
     Route: 065
  2. BURANA [Concomitant]
     Active Substance: IBUPROFEN
     Indication: MIGRAINE
     Route: 065
  3. ZOPICLONE [Concomitant]
     Active Substance: ZOPICLONE
     Indication: PRODUCT USED FOR UNKNOWN INDICATION
     Dosage: PRN
     Route: 065
  4. PROPRAL [Concomitant]
     Indication: MIGRAINE
     Route: 065
  5. BURANA [Concomitant]
     Active Substance: IBUPROFEN
     Indication: PAIN
     Dosage: PRN
     Route: 065
  6. SIRDALUD [Concomitant]
     Active Substance: TIZANIDINE
     Indication: MUSCULOSKELETAL DISCOMFORT
     Dosage: PRN
     Route: 065
  7. ESTRENA [Concomitant]
     Indication: PRODUCT USED FOR UNKNOWN INDICATION
     Dosage: DOSE: 1 (UNSPECIFIED)
     Route: 065
  8. BUVENTOL [Concomitant]
     Indication: ASTHMA
     Dosage: PRN
     Route: 065
  9. AIMOVIG [Suspect]
     Active Substance: ERENUMAB-AOOE
     Route: 065
     Dates: start: 20190429
  10. CANDEXETIL [Concomitant]
     Active Substance: CANDESARTAN
     Indication: MIGRAINE
     Route: 065
  11. BECLOMET [Concomitant]
     Indication: ASTHMA
     Dosage: PRN
     Route: 065
  12. PREDNISOLONE. [Suspect]
     Active Substance: PREDNISOLONE
     Indication: INFECTION
     Route: 065
  13. HISTEC [Concomitant]
     Active Substance: CETIRIZINE HYDROCHLORIDE
     Indication: ANTIALLERGIC THERAPY
     Dosage: PRN
     Route: 065
  14. PREDNISOLONE. [Suspect]
     Active Substance: PREDNISOLONE
     Indication: COUGH
     Route: 065
  15. AIMOVIG [Suspect]
     Active Substance: ERENUMAB-AOOE
     Indication: MIGRAINE
     Route: 065
     Dates: start: 20190401

REACTIONS (15)
  - Headache [Unknown]
  - Infection [Recovering/Resolving]
  - Disease prodromal stage [Recovered/Resolved]
  - Constipation [Not Recovered/Not Resolved]
  - Sleep disorder [Recovered/Resolved]
  - Malaise [Recovering/Resolving]
  - Fatigue [Recovered/Resolved]
  - Cough [Recovered/Resolved]
  - Decreased appetite [Recovered/Resolved]
  - Irritability [Recovered/Resolved]
  - Migraine [Recovered/Resolved]
  - Speech disorder [Recovered/Resolved]
  - Disturbance in attention [Recovered/Resolved]
  - Nausea [Recovered/Resolved]
  - General physical condition abnormal [Not Recovered/Not Resolved]

NARRATIVE: CASE EVENT DATE: 201904
